FAERS Safety Report 26189272 (Version 1)
Quarter: 2025Q4

REPORT INFORMATION
  Report Type: Report from Study
  Country: US (occurrence: US)
  Receive Date: 20251223
  Receipt Date: 20251223
  Transmission Date: 20260117
  Serious: Yes (Hospitalization)
  Sender: ALEXION PHARMACEUTICALS
  Company Number: US-AstraZeneca-CH-01019387A

PATIENT
  Sex: Female

DRUGS (1)
  1. EPLONTERSEN SODIUM [Suspect]
     Active Substance: EPLONTERSEN SODIUM
     Dosage: 45 MILLIGRAM, Q4W

REACTIONS (6)
  - Cardiac disorder [Unknown]
  - Malaise [Unknown]
  - Peripheral swelling [Unknown]
  - Dyspnoea [Unknown]
  - Arthritis [Unknown]
  - Fatigue [Unknown]
